FAERS Safety Report 19892161 (Version 2)
Quarter: 2021Q4

REPORT INFORMATION
  Report Type: Report from Study
  Country: US (occurrence: US)
  Receive Date: 20210929
  Receipt Date: 20211001
  Transmission Date: 20220303
  Serious: Yes (Hospitalization)
  Sender: FDA-Public Use
  Company Number: US-ROCHE-2923329

PATIENT
  Age: 64 Year
  Sex: Male
  Weight: 54.5 kg

DRUGS (20)
  1. CABOZANTINIB [Suspect]
     Active Substance: CABOZANTINIB
     Indication: Transitional cell carcinoma
     Route: 048
     Dates: start: 20210120
  2. CABOZANTINIB [Suspect]
     Active Substance: CABOZANTINIB
     Route: 048
  3. ATEZOLIZUMAB [Suspect]
     Active Substance: ATEZOLIZUMAB
     Indication: Transitional cell carcinoma
     Route: 041
     Dates: start: 20210120
  4. ATORVASTATIN [Concomitant]
     Active Substance: ATORVASTATIN
  5. MIRALAX [Concomitant]
     Active Substance: POLYETHYLENE GLYCOL 3350
  6. ONDANSETRON [Concomitant]
     Active Substance: ONDANSETRON
  7. COMPAZINE [Concomitant]
     Active Substance: PROCHLORPERAZINE MALEATE
  8. ADVAIR HFA [Concomitant]
     Active Substance: FLUTICASONE PROPIONATE\SALMETEROL XINAFOATE
  9. AMLODIPINE [Concomitant]
     Active Substance: AMLODIPINE BESYLATE
  10. PRILOSEC [Concomitant]
     Active Substance: OMEPRAZOLE MAGNESIUM
  11. GABAPENTIN [Concomitant]
     Active Substance: GABAPENTIN
  12. CLARITIN [Concomitant]
     Active Substance: LORATADINE
  13. ALEVE [Concomitant]
     Active Substance: NAPROXEN SODIUM
  14. MS CONTIN [Concomitant]
     Active Substance: MORPHINE SULFATE
  15. UREACIN [Concomitant]
  16. CLOBEX [Concomitant]
     Active Substance: CLOBETASOL PROPIONATE
  17. HYDROMORPHONE [Concomitant]
     Active Substance: HYDROMORPHONE
  18. CYCLOBENZAPRINE [Concomitant]
     Active Substance: CYCLOBENZAPRINE
  19. MIRTAZAPINE [Concomitant]
     Active Substance: MIRTAZAPINE
  20. MAGNESIUM OXIDE [Concomitant]
     Active Substance: MAGNESIUM OXIDE

REACTIONS (1)
  - Failure to thrive [Recovered/Resolved]

NARRATIVE: CASE EVENT DATE: 20210906
